FAERS Safety Report 16765806 (Version 1)
Quarter: 2019Q3

REPORT INFORMATION
  Report Type: Spontaneous
  Country: GB (occurrence: GB)
  Receive Date: 20190903
  Receipt Date: 20190903
  Transmission Date: 20191005
  Serious: Yes (Other)
  Sender: FDA-Public Use
  Company Number: GB-TEVA-2019-GB-1100021

PATIENT
  Age: 74 Year
  Sex: Male
  Weight: 103.41 kg

DRUGS (11)
  1. BRALTUS [Concomitant]
     Active Substance: TIOTROPIUM BROMIDE
  2. BRICANYL [Concomitant]
     Active Substance: TERBUTALINE SULFATE
  3. AMLODIPINE [Concomitant]
     Active Substance: AMLODIPINE BESYLATE
  4. CARBOCISTEINE [Concomitant]
     Active Substance: CARBOCYSTEINE
  5. COTRIMOXAZOLE [Concomitant]
     Active Substance: SULFAMETHOXAZOLE\TRIMETHOPRIM
  6. FOLIC ACID. [Suspect]
     Active Substance: FOLIC ACID
     Indication: RED BLOOD CELL COUNT DECREASED
     Route: 048
     Dates: start: 20190604, end: 20190703
  7. RANITIDINE. [Concomitant]
     Active Substance: RANITIDINE
  8. FOSTAIR [Concomitant]
     Active Substance: BECLOMETHASONE\FORMOTEROL
  9. SLO-PHYLLIN [Concomitant]
     Active Substance: THEOPHYLLINE ANHYDROUS
  10. CLOPIDOGREL [Concomitant]
     Active Substance: CLOPIDOGREL BISULFATE
  11. GENERICS UK ESOMEPRAZOLE GASTRO-RESISTANT [Concomitant]
     Active Substance: ESOMEPRAZOLE

REACTIONS (1)
  - Dyspnoea [Not Recovered/Not Resolved]

NARRATIVE: CASE EVENT DATE: 20190608
